FAERS Safety Report 7405131-X (Version None)
Quarter: 2011Q2

REPORT INFORMATION
  Report Type: 
  Country: None (occurrence: None)
  Receive Date: 20110411
  Receipt Date: 20110405
  Transmission Date: 20111010
  Serious: Yes (Death, Other)
  Sender: FDA-Public Use
  Company Number: AU-AMGEN-AUSSP2010009876

PATIENT

DRUGS (1)
  1. VECTIBIX [Suspect]
     Indication: COLORECTAL CANCER

REACTIONS (5)
  - NEOPLASM MALIGNANT [None]
  - INTESTINAL INFARCTION [None]
  - METASTASES TO LIVER [None]
  - METASTASES TO LUNG [None]
  - RASH [None]
